FAERS Safety Report 8834410 (Version 1)
Quarter: 2012Q4

REPORT INFORMATION
  Report Type: 
  Country: US (occurrence: US)
  Receive Date: 20121010
  Receipt Date: 20121010
  Transmission Date: 20130627
  Serious: No
  Sender: FDA-Public Use
  Company Number: US-TEVA-362633USA

PATIENT
  Sex: Female

DRUGS (1)
  1. NUVIGIL [Suspect]

REACTIONS (5)
  - Headache [Unknown]
  - Chest pain [Unknown]
  - Hiatus hernia [Unknown]
  - Back pain [Unknown]
  - Blood pressure increased [Unknown]
